FAERS Safety Report 25331047 (Version 1)
Quarter: 2025Q2

REPORT INFORMATION
  Report Type: Spontaneous
  Country: US (occurrence: None)
  Receive Date: 20250517
  Receipt Date: 20250517
  Transmission Date: 20250716
  Serious: Yes (Other)
  Sender: FDA-CTU
  Company Number: None

PATIENT
  Age: 73 Year
  Sex: Male
  Weight: 114.75 kg

DRUGS (12)
  1. EYLEA [Suspect]
     Active Substance: AFLIBERCEPT
     Indication: Macular degeneration
     Route: 047
     Dates: start: 20230501, end: 20250515
  2. ROSUVASTATIN [Concomitant]
     Active Substance: ROSUVASTATIN
  3. AMITRIPTYLINE [Concomitant]
     Active Substance: AMITRIPTYLINE
  4. metrpolol tartrate [Concomitant]
  5. METFORMIN [Concomitant]
     Active Substance: METFORMIN HYDROCHLORIDE
  6. LORATADINE [Concomitant]
     Active Substance: LORATADINE
  7. SPIRONOLACTONE [Concomitant]
     Active Substance: SPIRONOLACTONE
  8. LOSARTAN [Concomitant]
     Active Substance: LOSARTAN
  9. JARDIANCE [Concomitant]
     Active Substance: EMPAGLIFLOZIN
  10. mornjaro [Concomitant]
  11. ASPIRIN [Concomitant]
     Active Substance: ASPIRIN
  12. HYALURONIC ACID [Concomitant]
     Active Substance: HYALURONIC ACID

REACTIONS (4)
  - Injection related reaction [None]
  - Diarrhoea [None]
  - Vomiting [None]
  - Blood pressure decreased [None]

NARRATIVE: CASE EVENT DATE: 20250516
